FAERS Safety Report 17103535 (Version 1)
Quarter: 2019Q4

REPORT INFORMATION
  Report Type: Spontaneous
  Country: US (occurrence: US)
  Receive Date: 20191202
  Receipt Date: 20191202
  Transmission Date: 20200122
  Serious: Yes (Hospitalization)
  Sender: FDA-Public Use
  Company Number: None

PATIENT
  Age: 82 Year
  Sex: Female
  Weight: 100.4 kg

DRUGS (6)
  1. ASPIRIN. [Suspect]
     Active Substance: ASPIRIN
     Route: 048
  2. VITAMIN C 500MG DAILY [Concomitant]
  3. DOXYCYCLINE 100MG BID [Concomitant]
  4. MAGNESIUM OXIDE 400MG DAILY [Concomitant]
  5. DABIGATRAN [Suspect]
     Active Substance: DABIGATRAN
     Indication: ATRIAL FIBRILLATION
     Route: 048
     Dates: start: 20130908
  6. INSULIN GLARGINE 40 UNITS DAILY [Concomitant]

REACTIONS (7)
  - Anaemia [None]
  - Dyspnoea exertional [None]
  - Orthopnoea [None]
  - Dyspnoea paroxysmal nocturnal [None]
  - Gastric ulcer [None]
  - Gastrointestinal haemorrhage [None]
  - Peripheral swelling [None]

NARRATIVE: CASE EVENT DATE: 20160822
